FAERS Safety Report 5429781-5 (Version None)
Quarter: 2007Q3

REPORT INFORMATION
  Report Type: 
  Country: None (occurrence: None)
  Receive Date: 20070827
  Receipt Date: 20070809
  Transmission Date: 20080115
  Serious: Yes (Other)
  Sender: FDA-Public Use
  Company Number: 002#4#2007-00139

PATIENT

DRUGS (1)
  1. NEUPRO [Suspect]
     Indication: DRUG USE FOR UNKNOWN INDICATION
     Dosage: 2MG/ 24H, 2 IN 1 D, TRANSDERMAL
     Route: 062

REACTIONS (1)
  - SUICIDE ATTEMPT [None]
